FAERS Safety Report 7247216-7 (Version None)
Quarter: 2011Q1

REPORT INFORMATION
  Report Type: 
  Country: None (occurrence: None)
  Receive Date: 20110127
  Receipt Date: 20110117
  Transmission Date: 20110831
  Serious: Yes (Hospitalization)
  Sender: FDA-Public Use
  Company Number: US-BAXTER-2011BH000321

PATIENT
  Age: 56 Year
  Sex: Male
  Weight: 129 kg

DRUGS (4)
  1. DIANEAL [Suspect]
     Indication: PERITONEAL DIALYSIS
     Route: 033
     Dates: start: 20100301, end: 20110106
  2. VALIUM [Concomitant]
     Indication: ANXIETY
     Route: 048
  3. XANAX [Concomitant]
     Indication: ANXIETY
     Route: 048
  4. DIANEAL [Suspect]
     Indication: PERITONEAL DIALYSIS
     Route: 033
     Dates: start: 20100301, end: 20110106

REACTIONS (2)
  - HYPERGLYCAEMIA [None]
  - ANXIETY [None]
